FAERS Safety Report 12933976 (Version 4)
Quarter: 2017Q2

REPORT INFORMATION
  Report Type: Report from Study
  Country: BR (occurrence: BR)
  Receive Date: 20161111
  Receipt Date: 20170619
  Transmission Date: 20170830
  Serious: Yes (Other)
  Sender: FDA-Public Use
  Company Number: ALCN2016BR007634

PATIENT
  Age: 66 Year
  Sex: Female

DRUGS (1)
  1. AZORGA [Suspect]
     Active Substance: BRINZOLAMIDE\TIMOLOL MALEATE
     Indication: PRODUCT USED FOR UNKNOWN INDICATION
     Dosage: UNK
     Route: 047

REACTIONS (4)
  - Cataract [Unknown]
  - Intraocular pressure test abnormal [Unknown]
  - Blindness unilateral [Unknown]
  - Glaucoma [Unknown]
